FAERS Safety Report 4378048-5 (Version None)
Quarter: 2004Q2

REPORT INFORMATION
  Report Type: 
  Country: None (occurrence: None)
  Receive Date: 20040608
  Receipt Date: 20040527
  Transmission Date: 20050107
  Serious: Yes (Death, Hospitalization)
  Sender: FDA-Public Use
  Company Number: 04P-229-0261878-00

PATIENT
  Age: 71 Year
  Sex: Female

DRUGS (3)
  1. HUMIRA 40 MG/ 0.8 ML PRE-FILLED SYRINGER (HUMIRA) (ADALIMUMAB) [Suspect]
     Indication: RHEUMATOID ARTHRITIS
     Dosage: 40 MG, 1 IN 2 WK, SUBCUTANEOUS
     Route: 058
     Dates: start: 20040109, end: 20040323
  2. CLARITHROMYCIN [Suspect]
     Dosage: SEE IMAGE
     Dates: start: 20040101
  3. CLARITHROMYCIN [Suspect]
     Dosage: SEE IMAGE
     Dates: start: 20040410

REACTIONS (2)
  - PNEUMONIA STREPTOCOCCAL [None]
  - RESPIRATORY FAILURE [None]
